FAERS Safety Report 13781560 (Version 1)
Quarter: 2017Q3

REPORT INFORMATION
  Report Type: Spontaneous
  Country: US (occurrence: US)
  Receive Date: 20170724
  Receipt Date: 20170724
  Transmission Date: 20171127
  Serious: No
  Sender: FDA-Public Use
  Company Number: None

PATIENT
  Age: 64 Year
  Sex: Male
  Weight: 67.5 kg

DRUGS (3)
  1. FUNGI PERFECTY MY COMMUNITY MUSHROOM EXTRACT [Concomitant]
  2. VITAMIN D [Concomitant]
     Active Substance: CHOLECALCIFEROL
  3. AZITHROMYCIN TABLETS USP [Suspect]
     Active Substance: AZITHROMYCIN ANHYDROUS
     Indication: LOWER RESPIRATORY TRACT INFECTION
     Dosage: ?          OTHER STRENGTH:MG;QUANTITY:6 TABLET(S);?
     Route: 048
     Dates: start: 20170718, end: 20170721

REACTIONS (6)
  - Cough [None]
  - Back pain [None]
  - Dysuria [None]
  - Pyrexia [None]
  - Breath sounds abnormal [None]
  - Urine flow decreased [None]

NARRATIVE: CASE EVENT DATE: 20170721
